FAERS Safety Report 9350110 (Version 1)
Quarter: 2013Q2

REPORT INFORMATION
  Report Type: Spontaneous
  Country: FR (occurrence: FR)
  Receive Date: 20130616
  Receipt Date: 20130616
  Transmission Date: 20140414
  Serious: Yes (Hospitalization)
  Sender: FDA-Public Use
  Company Number: FR-009507513-1306FRA003469

PATIENT
  Age: 64 Year
  Sex: Female

DRUGS (7)
  1. TIENAM 500MG/500MG, POUDRE POUR PERFUSION [Suspect]
     Dosage: 2 G, QD
     Route: 042
     Dates: start: 20130314, end: 20130331
  2. INEXIUM [Suspect]
     Dosage: 20 MG, QD
     Route: 048
     Dates: start: 20130317, end: 20130401
  3. VFEND [Suspect]
     Dosage: 250 MG, QD
     Route: 042
     Dates: start: 20130317, end: 20130329
  4. ZYVOXID [Suspect]
     Dosage: 1.2 G, QD
     Route: 042
     Dates: start: 20130317, end: 20130328
  5. HYPNOVEL [Suspect]
     Dosage: UNK
     Route: 042
     Dates: start: 20130316, end: 20130328
  6. SOLUDACTONE [Suspect]
     Dosage: UNK
     Route: 042
     Dates: start: 20130321, end: 20130330
  7. FENTANYL [Concomitant]
     Dosage: UNK
     Dates: start: 20130316

REACTIONS (3)
  - Cholestasis [Not Recovered/Not Resolved]
  - Rash maculo-papular [Recovered/Resolved]
  - Eosinophilia [Recovered/Resolved]
